FAERS Safety Report 12242155 (Version 3)
Quarter: 2016Q2

REPORT INFORMATION
  Report Type: Spontaneous
  Country: BR (occurrence: BR)
  Receive Date: 20160406
  Receipt Date: 20160517
  Transmission Date: 20160815
  Serious: Yes (Other)
  Sender: FDA-Public Use
  Company Number: BR-PFIZER INC-2016194116

PATIENT
  Age: 48 Year
  Sex: Male
  Weight: 120 kg

DRUGS (20)
  1. GEODON [Suspect]
     Active Substance: ZIPRASIDONE HYDROCHLORIDE\ZIPRASIDONE MESYLATE
     Dosage: 80 MG, AT 1 TABLET IN THE MORNING AND 2 AT NIGHT
     Dates: start: 2005
  2. GEODON [Suspect]
     Active Substance: ZIPRASIDONE HYDROCHLORIDE\ZIPRASIDONE MESYLATE
     Dosage: 2 TABLETS OF 40 MG IN THE MORNING AND 2 TABLETS OF 80 MG AT NIGHT
     Dates: start: 2013
  3. AKINETON [Concomitant]
     Active Substance: BIPERIDEN HYDROCHLORIDE
     Indication: SCHIZOPHRENIA
     Dosage: 2 MG, 2X/DAY
  4. GEODON [Suspect]
     Active Substance: ZIPRASIDONE HYDROCHLORIDE\ZIPRASIDONE MESYLATE
     Dosage: 2 TABLETS OF 80 MG, 2X/DAY
     Dates: start: 200501, end: 2005
  5. FLUOXETINE [Concomitant]
     Active Substance: FLUOXETINE HYDROCHLORIDE
     Indication: SCHIZOPHRENIA
     Dosage: 20 MG, 1X/DAY
     Dates: start: 2004
  6. ENALAPRIL [Concomitant]
     Active Substance: ENALAPRIL
     Indication: BLOOD PRESSURE ABNORMAL
     Dosage: 10 MG 3 TABLETS/DAY
  7. GEODON [Suspect]
     Active Substance: ZIPRASIDONE HYDROCHLORIDE\ZIPRASIDONE MESYLATE
     Dosage: 2 TABLETS OF 40 MG IN THE MORNING, 1 OF 40 MG AT LUNCH AND 2 TABLETS OF 80 MG AT NIGHT
     Dates: start: 201603
  8. SOMALGIN [Concomitant]
     Active Substance: ASPIRIN\DIHYDROXYALUMINUM AMINOACETATE ANHYDROUS\MAGNESIUM CARBONATE
     Indication: PROPHYLAXIS
     Dosage: 100 MG, 1X/DAY
  9. FLUOXETINE [Concomitant]
     Active Substance: FLUOXETINE HYDROCHLORIDE
     Indication: OBSESSIVE-COMPULSIVE DISORDER
     Dosage: 2 TABLETS/DAY
  10. RISPERIDONE. [Concomitant]
     Active Substance: RISPERIDONE
     Indication: SCHIZOPHRENIA
     Dosage: 3 TABLETS/DAY
     Dates: start: 2004
  11. CLOMIPRAMINE [Concomitant]
     Active Substance: CLOMIPRAMINE
     Indication: SCHIZOPHRENIA
     Dosage: 25 MG, 2X/DAY
     Dates: start: 2004
  12. SIMVASTATIN. [Concomitant]
     Active Substance: SIMVASTATIN
     Indication: BLOOD CHOLESTEROL ABNORMAL
     Dosage: 10 MG, 1X/DAY
  13. GEODON [Suspect]
     Active Substance: ZIPRASIDONE HYDROCHLORIDE\ZIPRASIDONE MESYLATE
     Indication: SCHIZOPHRENIA
     Dosage: 80 MG, 2X/DAY
     Dates: start: 200409
  14. CLOMIPRAMINE [Concomitant]
     Active Substance: CLOMIPRAMINE
     Indication: OBSESSIVE-COMPULSIVE DISORDER
  15. AKINETON [Concomitant]
     Active Substance: BIPERIDEN HYDROCHLORIDE
     Indication: OBSESSIVE-COMPULSIVE DISORDER
  16. OMEPRAZOLE. [Concomitant]
     Active Substance: OMEPRAZOLE
     Indication: ABDOMINAL DISCOMFORT
     Dosage: 1 TABLET IN THE MORNING
     Dates: start: 200411
  17. GEODON [Suspect]
     Active Substance: ZIPRASIDONE HYDROCHLORIDE\ZIPRASIDONE MESYLATE
     Dosage: 80 MG, 2X/DAY
     Dates: start: 2005, end: 2005
  18. RISPERIDONE. [Concomitant]
     Active Substance: RISPERIDONE
     Indication: OBSESSIVE-COMPULSIVE DISORDER
  19. TEGRETOL CR [Concomitant]
     Active Substance: CARBAMAZEPINE
     Indication: SCHIZOPHRENIA
     Dosage: 200 MG 3 TABLETS PER DAY
  20. TEGRETOL CR [Concomitant]
     Active Substance: CARBAMAZEPINE
     Indication: OBSESSIVE-COMPULSIVE DISORDER

REACTIONS (3)
  - Intentional product use issue [Unknown]
  - Physical assault [Unknown]
  - Aggression [Unknown]

NARRATIVE: CASE EVENT DATE: 201602
